FAERS Safety Report 4572853-8 (Version None)
Quarter: 2005Q1

REPORT INFORMATION
  Report Type: 
  Country: None (occurrence: None)
  Receive Date: 20050208
  Receipt Date: 20040712
  Transmission Date: 20050727
  Serious: No
  Sender: FDA-Public Use
  Company Number: US-GLAXOSMITHKLINE-A0517819A

PATIENT
  Sex: Male

DRUGS (2)
  1. PAXIL [Suspect]
     Indication: ANXIETY
     Dosage: 25MG UNKNOWN
     Route: 048
  2. LORAZEPAM [Concomitant]

REACTIONS (2)
  - ADVERSE EVENT [None]
  - TREMOR [None]
